FAERS Safety Report 6622578-X (Version None)
Quarter: 2010Q1

REPORT INFORMATION
  Report Type: 
  Country: None (occurrence: None)
  Receive Date: 20100310
  Receipt Date: 20100113
  Transmission Date: 20100710
  Serious: No
  Sender: FDA-Public Use
  Company Number: US-BIOGENIDEC-2010BI001259

PATIENT
  Sex: Female

DRUGS (1)
  1. AVONEX [Suspect]
     Indication: MULTIPLE SCLEROSIS
     Route: 030
     Dates: start: 19990815

REACTIONS (11)
  - ARTHRITIS [None]
  - BALANCE DISORDER [None]
  - DIZZINESS [None]
  - FALL [None]
  - FEAR [None]
  - INJECTION SITE PAIN [None]
  - JOINT SPRAIN [None]
  - MEMORY IMPAIRMENT [None]
  - MULTIPLE SCLEROSIS [None]
  - PSORIASIS [None]
  - ROAD TRAFFIC ACCIDENT [None]
